FAERS Safety Report 4381450-9 (Version None)
Quarter: 2004Q2

REPORT INFORMATION
  Report Type: 
  Country: None (occurrence: None)
  Receive Date: 20040618
  Receipt Date: 20040618
  Transmission Date: 20050107
  Serious: Yes (Hospitalization)
  Sender: FDA-Public Use
  Company Number: None

PATIENT
  Age: 28 Year
  Sex: Female

DRUGS (1)
  1. TOPAMAX [Suspect]
     Indication: WEIGHT CONTROL
     Dosage: 1 DOSE
     Dates: start: 20040507

REACTIONS (4)
  - ANGLE CLOSURE GLAUCOMA [None]
  - IRIDOTOMY [None]
  - NAUSEA [None]
  - VISION BLURRED [None]
